FAERS Safety Report 17437732 (Version 1)
Quarter: 2020Q1

REPORT INFORMATION
  Report Type: Spontaneous
  Country: US (occurrence: US)
  Receive Date: 20200219
  Receipt Date: 20200219
  Transmission Date: 20200409
  Serious: No
  Sender: FDA-Public Use
  Company Number: US-INCYTE CORPORATION-2020IN001510

PATIENT

DRUGS (1)
  1. JAKAFI [Suspect]
     Active Substance: RUXOLITINIB
     Indication: POLYCYTHAEMIA VERA
     Dosage: 10 MILLIGRAM, QD
     Route: 048
     Dates: start: 20170921

REACTIONS (6)
  - Pain in extremity [Unknown]
  - Hypoaesthesia [Unknown]
  - Cardiovascular disorder [Unknown]
  - Back pain [Unknown]
  - Balance disorder [Unknown]
  - Headache [Unknown]
